FAERS Safety Report 15985876 (Version 1)
Quarter: 2019Q1

REPORT INFORMATION
  Report Type: Spontaneous
  Country: US (occurrence: US)
  Receive Date: 20190220
  Receipt Date: 20190220
  Transmission Date: 20190418
  Serious: Yes (Hospitalization, Disabling)
  Sender: FDA-Public Use
  Company Number: None

PATIENT
  Age: 40 Year
  Sex: Male

DRUGS (2)
  1. CYMBALTA [Suspect]
     Active Substance: DULOXETINE HYDROCHLORIDE
     Indication: HEADACHE
     Dosage: ?          QUANTITY:1 CAPSULE(S);?
     Route: 048
     Dates: start: 20120215, end: 20170612
  2. CYMBALTA [Suspect]
     Active Substance: DULOXETINE HYDROCHLORIDE
     Indication: NEURALGIA
     Dosage: ?          QUANTITY:1 CAPSULE(S);?
     Route: 048
     Dates: start: 20120215, end: 20170612

REACTIONS (17)
  - Tremor [None]
  - Memory impairment [None]
  - Neurological symptom [None]
  - Tic [None]
  - Nystagmus [None]
  - Seizure [None]
  - Paralysis [None]
  - Nerve injury [None]
  - Insomnia [None]
  - Hallucination [None]
  - Dystonia [None]
  - Visual impairment [None]
  - Hyperhidrosis [None]
  - Syncope [None]
  - Dysplasia [None]
  - Facial paralysis [None]
  - Nervous system disorder [None]
